FAERS Safety Report 9733450 (Version 1)
Quarter: 2013Q4

REPORT INFORMATION
  Report Type: Spontaneous
  Country: US (occurrence: None)
  Receive Date: 20131204
  Receipt Date: 20131204
  Transmission Date: 20140711
  Serious: Yes (Other)
  Sender: FDA-Public Use
  Company Number: None

PATIENT
  Sex: Female
  Weight: 87.54 kg

DRUGS (1)
  1. ENALAPRIL [Suspect]
     Indication: HYPERTENSION
     Dosage: 20 MG 1/2 TAB DAILY,?THIS IS REPORTED TO HAVE HAPPENED WHILE LIING IN RUSSIA

REACTIONS (2)
  - Cough [None]
  - Oropharyngeal pain [None]
